FAERS Safety Report 7642203-9 (Version None)
Quarter: 2011Q3

REPORT INFORMATION
  Report Type: 
  Country: None (occurrence: None)
  Receive Date: 20110728
  Receipt Date: 20110726
  Transmission Date: 20111222
  Serious: Yes (Hospitalization)
  Sender: FDA-Public Use
  Company Number: US-PFIZER INC-2005107655

PATIENT
  Sex: Male
  Weight: 77 kg

DRUGS (7)
  1. PROTONIX [Concomitant]
     Route: 048
  2. ACTIQ [Concomitant]
     Indication: PAIN
     Route: 048
  3. METHADON AMIDONE HCL TAB [Concomitant]
     Route: 048
  4. SUNITINIB MALATE [Suspect]
     Indication: GASTROINTESTINAL STROMAL TUMOUR
     Dosage: 50 MG, 1X/DAY
     Route: 048
     Dates: start: 20050607, end: 20050722
  5. OMNICEF [Concomitant]
  6. SENNOSIDES [Concomitant]
     Route: 048
  7. ZOLOFT [Concomitant]
     Route: 048

REACTIONS (2)
  - ABDOMINAL PAIN [None]
  - CELLULITIS [None]
